FAERS Safety Report 8660731 (Version 4)
Quarter: 2012Q4

REPORT INFORMATION
  Report Type: Report from Study
  Country: JP (occurrence: JP)
  Receive Date: 20120711
  Receipt Date: 20121116
  Transmission Date: 20130627
  Serious: Yes (Hospitalization)
  Sender: FDA-Public Use
  Company Number: JP-009507513-2012SP029611

PATIENT
  Age: 56 Year
  Sex: Female
  Weight: 54 kg

DRUGS (8)
  1. PEGINTRON [Suspect]
     Indication: HEPATITIS C
     Dosage: 1.5 ?g/kg, qw
     Route: 058
     Dates: start: 20120308, end: 20120517
  2. PEGINTRON [Suspect]
     Dosage: 50mcg 0.4 ml, once a week
     Route: 058
     Dates: start: 20120525
  3. REBETOL [Suspect]
     Indication: HEPATITIS C
     Dosage: 600 mg, qd
     Route: 048
     Dates: start: 20120308, end: 20120412
  4. REBETOL [Suspect]
     Dosage: 400 mg, qd
     Route: 048
     Dates: start: 20120412, end: 20120419
  5. REBETOL [Suspect]
     Dosage: 200 mg, qd
     Route: 048
     Dates: start: 20120419
  6. TELAVIC [Suspect]
     Indication: HEPATITIS C
     Route: 048
     Dates: start: 20120308, end: 20120517
  7. CLARITIN REDITABS [Concomitant]
     Dosage: 10 mg, QD
     Route: 048
     Dates: start: 20120308
  8. TAKEPRON [Concomitant]
     Indication: PROPHYLAXIS
     Dosage: 15 mg, qd
     Route: 048
     Dates: start: 20120312

REACTIONS (1)
  - Rash papular [Recovered/Resolved]
